FAERS Safety Report 26021188 (Version 1)
Quarter: 2025Q4

REPORT INFORMATION
  Report Type: Spontaneous
  Country: EU (occurrence: EU)
  Receive Date: 20251110
  Receipt Date: 20251110
  Transmission Date: 20260117
  Serious: Yes (Hospitalization, Disabling, Other)
  Sender: TEVA
  Company Number: EU-TEVA-VS-3389573

PATIENT
  Age: 29 Year
  Sex: Male

DRUGS (9)
  1. SILDENAFIL [Suspect]
     Active Substance: SILDENAFIL
     Indication: Sexual dysfunction
     Dosage: 10-20 MG DAILY OR EVERY OTHER DAY FOR APPROXIMATELY 3 WEEKS BEFORE DEVELOPING HEARING LOSS
     Route: 065
  2. VITAMIN B6 [Suspect]
     Active Substance: PYRIDOXINE HYDROCHLORIDE
     Indication: Vitamin supplementation
     Dosage: TIME INTERVAL: 0.33333333 DAYS
     Route: 048
  3. DAPOXETINE [Concomitant]
     Active Substance: DAPOXETINE
     Indication: Sexual dysfunction
     Route: 065
  4. DAPOXETINE [Concomitant]
     Active Substance: DAPOXETINE
     Indication: Sexual dysfunction
     Route: 065
  5. HYDROCORTISONE [Suspect]
     Active Substance: HYDROCORTISONE
     Indication: Sudden hearing loss
     Route: 042
  6. MANNITOL [Suspect]
     Active Substance: MANNITOL
     Indication: Deafness neurosensory
     Route: 065
  7. OMEPRAZOLE [Suspect]
     Active Substance: OMEPRAZOLE
     Indication: Deafness neurosensory
     Route: 042
  8. VITAMIN B1 [Suspect]
     Active Substance: THIAMINE HYDROCHLORIDE
     Indication: Vitamin supplementation
     Route: 048
  9. VITAMIN B12 [Suspect]
     Active Substance: CYANOCOBALAMIN
     Indication: Vitamin supplementation
     Dosage: TIME INTERVAL: 0.33333333 DAYS
     Route: 048

REACTIONS (3)
  - Sudden hearing loss [Not Recovered/Not Resolved]
  - Deafness neurosensory [Not Recovered/Not Resolved]
  - Drug ineffective [Unknown]
